FAERS Safety Report 16900254 (Version 1)
Quarter: 2019Q4

REPORT INFORMATION
  Report Type: Spontaneous
  Country: US (occurrence: US)
  Receive Date: 20191009
  Receipt Date: 20191009
  Transmission Date: 20200122
  Serious: No
  Sender: FDA-Public Use
  Company Number: US-BRISTOL-MYERS SQUIBB COMPANY-BMS-2019-093894

PATIENT
  Sex: Male
  Weight: 96.16 kg

DRUGS (1)
  1. COUMADINE [Suspect]
     Active Substance: WARFARIN SODIUM
     Indication: CEREBROVASCULAR ACCIDENT PROPHYLAXIS
     Dosage: UNK
     Route: 065

REACTIONS (3)
  - Renal disorder [Unknown]
  - Skin discolouration [Unknown]
  - Contusion [Unknown]
